FAERS Safety Report 22980601 (Version 2)
Quarter: 2023Q4

REPORT INFORMATION
  Report Type: Spontaneous
  Country: GB (occurrence: None)
  Receive Date: 20230925
  Receipt Date: 20231124
  Transmission Date: 20240109
  Serious: Yes (Death, Other)
  Sender: FDA-Public Use
  Company Number: GB-ROCHE-3422383

PATIENT
  Age: 47 Year
  Sex: Female

DRUGS (1)
  1. OCREVUS [Suspect]
     Active Substance: OCRELIZUMAB
     Indication: Product used for unknown indication
     Dosage: DAY 15 INFUSION ON 27TH JUNE
     Route: 065
     Dates: start: 20230613

REACTIONS (5)
  - Death [Fatal]
  - Progressive multifocal leukoencephalopathy [Unknown]
  - Dysphagia [Unknown]
  - Speech disorder [Unknown]
  - Central nervous system lesion [Unknown]

NARRATIVE: CASE EVENT DATE: 20230801
